FAERS Safety Report 11878152 (Version 2)
Quarter: 2016Q2

REPORT INFORMATION
  Report Type: Spontaneous
  Country: US (occurrence: US)
  Receive Date: 20151230
  Receipt Date: 20160429
  Transmission Date: 20160815
  Serious: No
  Sender: FDA-Public Use
  Company Number: US-BAYER-2015-494345

PATIENT
  Age: 77 Year
  Sex: Female
  Weight: 61.22 kg

DRUGS (2)
  1. FIBER [Concomitant]
     Active Substance: PSYLLIUM HUSK
     Dosage: UNK
  2. MIRALAX [Suspect]
     Active Substance: POLYETHYLENE GLYCOL 3350
     Dosage: 1 DF, QD
     Route: 048
     Dates: start: 201512

REACTIONS (7)
  - Vomiting [None]
  - Product deposit [None]
  - Product solubility abnormal [None]
  - Prescribed underdose [None]
  - Malaise [None]
  - Product use issue [None]
  - Abdominal pain upper [None]

NARRATIVE: CASE EVENT DATE: 20151218
